FAERS Safety Report 12177760 (Version 3)
Quarter: 2016Q2

REPORT INFORMATION
  Report Type: Spontaneous
  Country: US (occurrence: US)
  Receive Date: 20160315
  Receipt Date: 20160502
  Transmission Date: 20160815
  Serious: Yes (Other)
  Sender: FDA-Public Use
  Company Number: US-LUPIN PHARMACEUTICALS INC.-E2B_00005057

PATIENT
  Sex: Female
  Weight: 60.38 kg

DRUGS (1)
  1. LISINOPRIL. [Suspect]
     Active Substance: LISINOPRIL
     Indication: HYPERTENSION
     Route: 048
     Dates: start: 20141107

REACTIONS (4)
  - Sleep disorder [Not Recovered/Not Resolved]
  - Hypertension [Recovered/Resolved]
  - Drug ineffective [Unknown]
  - Cough [Not Recovered/Not Resolved]
